FAERS Safety Report 9338531 (Version 1)
Quarter: 2013Q2

REPORT INFORMATION
  Report Type: Spontaneous
  Country: ES (occurrence: ES)
  Receive Date: 20130610
  Receipt Date: 20130610
  Transmission Date: 20140414
  Serious: Yes (Hospitalization, Other)
  Sender: FDA-Public Use
  Company Number: ES-TEVA-408459ISR

PATIENT
  Age: 22 Year
  Sex: Male

DRUGS (1)
  1. METFORMIN [Suspect]
     Route: 065

REACTIONS (2)
  - Metabolic acidosis [Unknown]
  - Suicide attempt [Unknown]
